FAERS Safety Report 5761307-9 (Version None)
Quarter: 2008Q2

REPORT INFORMATION
  Report Type: 
  Country: None (occurrence: None)
  Receive Date: 20080606
  Receipt Date: 20080602
  Transmission Date: 20081010
  Serious: Yes (Life-Threatening, Hospitalization, Other)
  Sender: FDA-Public Use
  Company Number: US-MERCK-0806USA00398

PATIENT
  Age: 65 Year
  Sex: Male
  Weight: 66 kg

DRUGS (7)
  1. JANUVIA [Suspect]
     Indication: TYPE 2 DIABETES MELLITUS
     Route: 048
     Dates: start: 20080123
  2. GLUCOPHAGE [Concomitant]
     Route: 065
  3. GLYBURIDE [Concomitant]
     Route: 065
  4. COLACE [Concomitant]
     Route: 065
  5. ACARBOSE [Concomitant]
     Route: 065
  6. ENALAPRIL MALEATE [Concomitant]
     Route: 065
  7. CAPTOPRIL [Concomitant]
     Route: 065

REACTIONS (3)
  - HEAD INJURY [None]
  - PULMONARY EMBOLISM [None]
  - SUBARACHNOID HAEMORRHAGE [None]
